FAERS Safety Report 7006346-5 (Version None)
Quarter: 2010Q3

REPORT INFORMATION
  Report Type: 
  Country: None (occurrence: None)
  Receive Date: 20100921
  Receipt Date: 20100222
  Transmission Date: 20110219
  Serious: Yes (Hospitalization)
  Sender: FDA-Public Use
  Company Number: NL-MYLANLABS-2010S1016839

PATIENT
  Age: 69 Year
  Sex: Male

DRUGS (2)
  1. METFORMIN HYDROCHLORIDE [Suspect]
     Indication: DIABETES MELLITUS
  2. TOLBUTAMIDE [Suspect]
     Indication: DIABETES MELLITUS
     Route: 048

REACTIONS (3)
  - DRUG INTERACTION [None]
  - GASTRIC ULCER [None]
  - HEPATITIS [None]
